FAERS Safety Report 18249245 (Version 1)
Quarter: 2020Q3

REPORT INFORMATION
  Report Type: Spontaneous
  Country: ES (occurrence: ES)
  Receive Date: 20200910
  Receipt Date: 20200910
  Transmission Date: 20201103
  Serious: Yes (Other)
  Sender: FDA-Public Use
  Company Number: ES-AUROBINDO-AUR-APL-2020-046798

PATIENT
  Age: 5 Day
  Sex: Female

DRUGS (2)
  1. IBUPROFEN 600 MG FILM?COATED TABLETS [Suspect]
     Active Substance: IBUPROFEN
     Dosage: UNK
     Route: 063
     Dates: start: 20200828
  2. IBUPROFEN 600 MG FILM?COATED TABLETS [Suspect]
     Active Substance: IBUPROFEN
     Indication: PAIN
     Dosage: UNK
     Route: 048
     Dates: start: 20200828

REACTIONS (2)
  - Rash [Recovered/Resolved]
  - Exposure via breast milk [Recovered/Resolved]

NARRATIVE: CASE EVENT DATE: 20200828
